FAERS Safety Report 15537021 (Version 1)
Quarter: 2018Q4

REPORT INFORMATION
  Report Type: Spontaneous
  Country: US (occurrence: US)
  Receive Date: 20181022
  Receipt Date: 20181022
  Transmission Date: 20190205
  Serious: Yes (Other)
  Sender: FDA-Public Use
  Company Number: US-RECKITT BENCKISER HEALTHCARE INT LIMITED-RB-92553-2018

PATIENT
  Age: 4 Year
  Sex: Female

DRUGS (1)
  1. BENZOCAINE. [Suspect]
     Active Substance: BENZOCAINE
     Indication: GASTROSTOMY
     Dosage: UNK
     Route: 061

REACTIONS (5)
  - Methaemoglobinaemia [Unknown]
  - Hypoxia [Unknown]
  - Confusional state [Unknown]
  - Myocardial infarction [Unknown]
  - Cyanosis [Unknown]
